FAERS Safety Report 5203814-3 (Version None)
Quarter: 2007Q1

REPORT INFORMATION
  Report Type: 
  Country: None (occurrence: None)
  Receive Date: 20070109
  Receipt Date: 20070109
  Transmission Date: 20070707
  Serious: No
  Sender: FDA-Public Use
  Company Number: None

PATIENT
  Sex: Male
  Weight: 87.5442 kg

DRUGS (2)
  1. LIPITOR [Suspect]
     Indication: HYPERCHOLESTEROLAEMIA
     Dosage: 20MG QHS PO
     Route: 048
     Dates: start: 20030708, end: 20050701
  2. LIPITOR [Suspect]
     Indication: HYPERCHOLESTEROLAEMIA
     Dosage: 20MG QHS PO
     Route: 048
     Dates: start: 20050701, end: 20070102

REACTIONS (3)
  - BACK PAIN [None]
  - DRUG EFFECT DECREASED [None]
  - PAIN IN EXTREMITY [None]
